FAERS Safety Report 4261824-7 (Version None)
Quarter: 2004Q1

REPORT INFORMATION
  Report Type: 
  Country: None (occurrence: None)
  Receive Date: 20040102
  Receipt Date: 20031119
  Transmission Date: 20041129
  Serious: Yes (Death, Other)
  Sender: FDA-Public Use
  Company Number: 200313429EU

PATIENT
  Age: 56 Year
  Sex: Male

DRUGS (2)
  1. DOCETAXEL [Suspect]
     Indication: GASTRIC CANCER
     Route: 042
     Dates: start: 20031111, end: 20031111
  2. IRINOTECAN [Suspect]
     Indication: GASTRIC CANCER
     Route: 042
     Dates: start: 20031111, end: 20031111

REACTIONS (19)
  - BLOOD CREATINE INCREASED [None]
  - BLOOD LACTATE DEHYDROGENASE INCREASED [None]
  - BLOOD PRESSURE DECREASED [None]
  - BLOOD URIC ACID INCREASED [None]
  - CARDIAC FAILURE [None]
  - DISSEMINATED INTRAVASCULAR COAGULATION [None]
  - GASTRIC HAEMORRHAGE [None]
  - HYPOVOLAEMIC SHOCK [None]
  - INTRACARDIAC THROMBUS [None]
  - LYMPHANGIOSIS CARCINOMATOSA [None]
  - METASTASES TO ADRENALS [None]
  - MULTI-ORGAN FAILURE [None]
  - MYOCARDIAL INFARCTION [None]
  - NECROSIS [None]
  - OVERDOSE [None]
  - PLATELET COUNT DECREASED [None]
  - PULMONARY THROMBOSIS [None]
  - TUMOUR LYSIS SYNDROME [None]
  - WHITE BLOOD CELL COUNT INCREASED [None]
